FAERS Safety Report 10660123 (Version 1)
Quarter: 2014Q4

REPORT INFORMATION
  Report Type: Spontaneous
  Country: US (occurrence: US)
  Receive Date: 20141217
  Receipt Date: 20141217
  Transmission Date: 20150529
  Serious: Yes (Hospitalization)
  Sender: FDA-Public Use
  Company Number: US-SA-2014SA052396

PATIENT
  Age: 76 Year
  Sex: Female

DRUGS (25)
  1. CLONIDINE. [Concomitant]
     Active Substance: CLONIDINE
     Dates: start: 201010
  2. CARBOPLATIN. [Suspect]
     Active Substance: CARBOPLATIN
     Indication: BREAST CANCER
     Dosage: CARBOPLATIN INFUSION
     Route: 042
     Dates: start: 20120711, end: 20120822
  3. ASPIRIN. [Concomitant]
     Active Substance: ASPIRIN
     Dates: start: 201010
  4. LOMOTIL [Concomitant]
     Active Substance: ATROPINE SULFATE\DIPHENOXYLATE HYDROCHLORIDE
     Route: 048
     Dates: start: 20120718, end: 20120920
  5. TAXOTERE [Suspect]
     Active Substance: DOCETAXEL
     Indication: BREAST CANCER
     Route: 042
     Dates: end: 20120920
  6. TRASTUZUMAB [Suspect]
     Active Substance: TRASTUZUMAB
     Indication: BREAST CANCER
     Dosage: MAINTENANCE DOSE, 6 MG/KG 1 IN 3 WEEK
     Route: 042
     Dates: start: 20120711, end: 20120822
  7. ALLOPURINOL. [Concomitant]
     Active Substance: ALLOPURINOL
     Dates: start: 200802
  8. TRASTUZUMAB [Suspect]
     Active Substance: TRASTUZUMAB
     Indication: BREAST CANCER
     Dosage: MAINTENANCE DOSE, 6 MG/KG 1 IN 3 WEEK
     Route: 042
     Dates: start: 20120926
  9. LISINOPRIL. [Concomitant]
     Active Substance: LISINOPRIL
     Dates: start: 201103
  10. CARVEDILOL. [Concomitant]
     Active Substance: CARVEDILOL
     Dates: start: 201103
  11. TAXOTERE [Suspect]
     Active Substance: DOCETAXEL
     Indication: BREAST CANCER
     Dosage: DOCETAXEL INFUSION
     Route: 042
     Dates: start: 20120711, end: 20120822
  12. PERTUZUMAB [Suspect]
     Active Substance: PERTUZUMAB
     Indication: BREAST CANCER
     Dosage: MAINTENANCE DOSE: 420 MG, 1 IN 3 WEEK
     Route: 042
     Dates: start: 20120711, end: 20120822
  13. TAXOTERE [Suspect]
     Active Substance: DOCETAXEL
     Indication: BREAST CANCER
     Dosage: DOCETAXEL INFUSION
     Route: 042
     Dates: start: 20120711, end: 20120822
  14. TAXOTERE [Suspect]
     Active Substance: DOCETAXEL
     Indication: BREAST CANCER
     Route: 042
     Dates: end: 20120920
  15. MAGNESIUM OXIDE. [Concomitant]
     Active Substance: MAGNESIUM OXIDE
     Dates: start: 201010
  16. OMEPRAZOLE. [Concomitant]
     Active Substance: OMEPRAZOLE
     Dates: start: 20120802, end: 20120920
  17. PERTUZUMAB [Suspect]
     Active Substance: PERTUZUMAB
     Indication: BREAST CANCER
     Dosage: LOADING DOSE: 8 MG/KG, CYCLE 1
     Route: 042
     Dates: start: 20120711, end: 20120711
  18. TRASTUZUMAB [Suspect]
     Active Substance: TRASTUZUMAB
     Indication: BREAST CANCER
     Dosage: LOADING DOSE (8 MG/KG,CYCLE 1 ONLY AS PER PROTOCOL)
     Route: 042
     Dates: start: 20120711, end: 20120711
  19. PROMETHAZINE HYDROCHLORIDE. [Concomitant]
     Active Substance: PROMETHAZINE HYDROCHLORIDE
     Route: 048
     Dates: start: 201103
  20. BUMEX [Concomitant]
     Active Substance: BUMETANIDE
  21. CARBOPLATIN. [Suspect]
     Active Substance: CARBOPLATIN
     Indication: BREAST CANCER
     Dosage: CARBOPLATIN INFUSION
     Route: 042
     Dates: start: 20120711, end: 20120822
  22. PERTUZUMAB [Suspect]
     Active Substance: PERTUZUMAB
     Indication: BREAST CANCER
     Dosage: MAINTENANCE DOSE ( 1IN 3 WEEK)
     Route: 042
     Dates: start: 20120926
  23. VOLTAREN [Concomitant]
     Active Substance: DICLOFENAC SODIUM
     Dates: start: 201001
  24. PRILOSEC [Concomitant]
     Active Substance: OMEPRAZOLE MAGNESIUM
     Dates: start: 20120802
  25. LORTAB [Concomitant]
     Active Substance: ACETAMINOPHEN\HYDROCODONE BITARTRATE
     Dates: start: 20120802, end: 20120920

REACTIONS (2)
  - Cellulitis [Recovered/Resolved]
  - Breast cellulitis [Recovered/Resolved]

NARRATIVE: CASE EVENT DATE: 20120818
